FAERS Safety Report 12633781 (Version 2)
Quarter: 2016Q3

REPORT INFORMATION
  Report Type: Spontaneous
  Country: FR (occurrence: FR)
  Receive Date: 20160809
  Receipt Date: 20160926
  Transmission Date: 20161109
  Serious: Yes (Disabling, Other)
  Sender: FDA-Public Use
  Company Number: FR-PFIZER INC-2016369510

PATIENT
  Age: 11 Year
  Sex: Female
  Weight: 43 kg

DRUGS (4)
  1. ADRIBLASTINE [Suspect]
     Active Substance: DOXORUBICIN
     Indication: OSTEOSARCOMA
     Dosage: 37.5 MG/M2, 2X/DAY
     Route: 041
     Dates: start: 20160519
  2. CISPLATIN. [Suspect]
     Active Substance: CISPLATIN
     Indication: OSTEOSARCOMA
     Dosage: 170 MG (120 MG/M2 PER SE), DAILY
     Route: 041
     Dates: start: 20160520
  3. CISPLATIN. [Suspect]
     Active Substance: CISPLATIN
     Dosage: 130 MG (100 MG/M2), DAILY
     Route: 041
  4. METHOTREXATE SODIUM. [Concomitant]
     Active Substance: METHOTREXATE SODIUM
     Dosage: UNK
     Dates: start: 20160511

REACTIONS (6)
  - Hypoaesthesia [Unknown]
  - Gastrointestinal toxicity [Unknown]
  - Vomiting [Unknown]
  - Deafness neurosensory [Recovered/Resolved with Sequelae]
  - Azotaemia [Unknown]
  - Hypotension [Unknown]

NARRATIVE: CASE EVENT DATE: 201605
